FAERS Safety Report 7261044-8 (Version None)
Quarter: 2011Q1

REPORT INFORMATION
  Report Type: 
  Country: None (occurrence: None)
  Receive Date: 20110130
  Receipt Date: 20101124
  Transmission Date: 20110831
  Serious: No
  Sender: FDA-Public Use
  Company Number: US-ABBOTT-10P-163-0687618-00

PATIENT
  Sex: Male
  Weight: 77.18 kg

DRUGS (3)
  1. HUMIRA [Suspect]
     Indication: CROHN'S DISEASE
     Dosage: ON HOLD DUE TO THE EVENT
     Dates: start: 20060101, end: 20101121
  2. OMEPRAZOLE [Concomitant]
     Indication: GASTROOESOPHAGEAL REFLUX DISEASE
  3. PENTAZA [Concomitant]
     Indication: CROHN'S DISEASE

REACTIONS (2)
  - PERIRECTAL ABSCESS [None]
  - DIZZINESS [None]
